FAERS Safety Report 5804592-7 (Version None)
Quarter: 2008Q3

REPORT INFORMATION
  Report Type: 
  Country: None (occurrence: None)
  Receive Date: 20080707
  Receipt Date: 20080707
  Transmission Date: 20090109
  Serious: No
  Sender: FDA-Public Use
  Company Number: None

PATIENT
  Age: 61 Year
  Sex: Male
  Weight: 51.26 kg

DRUGS (2)
  1. WARFARIN SODIUM [Suspect]
     Indication: PULMONARY EMBOLISM
     Dates: start: 20060906
  2. CLOPIDOGREL [Suspect]
     Dates: start: 20070906

REACTIONS (21)
  - ANAEMIA [None]
  - BENIGN PROSTATIC HYPERPLASIA [None]
  - CHEST DISCOMFORT [None]
  - CHILLS [None]
  - CHRONIC OBSTRUCTIVE PULMONARY DISEASE [None]
  - COUGH [None]
  - GASTROINTESTINAL HAEMORRHAGE [None]
  - HAEMOPTYSIS [None]
  - HAEMORRHAGE [None]
  - HYPERTENSION [None]
  - INTERNATIONAL NORMALISED RATIO INCREASED [None]
  - IRON DEFICIENCY ANAEMIA [None]
  - LUNG NEOPLASM [None]
  - PAIN [None]
  - POST-TRAUMATIC STRESS DISORDER [None]
  - PULMONARY EMBOLISM [None]
  - REFUSAL OF TREATMENT BY PATIENT [None]
  - SPUTUM DISCOLOURED [None]
  - SWELLING [None]
  - THYROID CANCER [None]
  - WHEEZING [None]
